FAERS Safety Report 4558470-4 (Version None)
Quarter: 2005Q1

REPORT INFORMATION
  Report Type: 
  Country: None (occurrence: None)
  Receive Date: 20050119
  Receipt Date: 20050106
  Transmission Date: 20050727
  Serious: Yes (Hospitalization)
  Sender: FDA-Public Use
  Company Number: RS003386-F

PATIENT
  Age: 31 Year
  Sex: Female
  Weight: 96 kg

DRUGS (3)
  1. PARIET                        (RABEPRAZOLE) (RABEPRAZOLE SODIUM) [Suspect]
     Indication: GASTROOESOPHAGEAL REFLUX DISEASE
     Dosage: ORAL
     Route: 048
     Dates: end: 20030301
  2. GAVISCON [Concomitant]
  3. CLOMID (CLOMIFENE CITRATE) [Concomitant]

REACTIONS (7)
  - CAESAREAN SECTION [None]
  - DRUG EXPOSURE DURING PREGNANCY [None]
  - PRE-ECLAMPSIA [None]
  - PREGNANCY [None]
  - PREMATURE LABOUR [None]
  - RUBELLA ANTIBODY POSITIVE [None]
  - TOXOPLASMA SEROLOGY POSITIVE [None]
